FAERS Safety Report 10793611 (Version 4)
Quarter: 2022Q1

REPORT INFORMATION
  Report Type: Spontaneous
  Country: DK (occurrence: DK)
  Receive Date: 20150213
  Receipt Date: 20220301
  Transmission Date: 20220424
  Serious: Yes (Death, Hospitalization, Other)
  Sender: FDA-Public Use
  Company Number: None

PATIENT
  Age: 55 Year
  Sex: Female
  Weight: 50 kg

DRUGS (2)
  1. XGEVA [Suspect]
     Active Substance: DENOSUMAB
     Indication: Breast cancer metastatic
     Dosage: 120 MILLIGRAM
     Route: 058
     Dates: start: 20130528
  2. ZOMETA [Suspect]
     Active Substance: ZOLEDRONIC ACID
     Indication: Metastases to bone
     Dosage: 4 MILLIGRAM
     Route: 042
     Dates: start: 20130417, end: 20130527

REACTIONS (8)
  - Death [Fatal]
  - Osteonecrosis of jaw [Fatal]
  - Exposed bone in jaw [Fatal]
  - Pain [Fatal]
  - Tooth loss [Fatal]
  - Impaired healing [Fatal]
  - Sinusitis [Fatal]
  - Loose tooth [Fatal]

NARRATIVE: CASE EVENT DATE: 20140827
